FAERS Safety Report 13751078 (Version 1)
Quarter: 2017Q3

REPORT INFORMATION
  Report Type: Spontaneous
  Country: US (occurrence: US)
  Receive Date: 20170713
  Receipt Date: 20170713
  Transmission Date: 20171127
  Serious: No
  Sender: FDA-Public Use
  Company Number: US-ASTELLAS-2017US010877

PATIENT
  Sex: Male

DRUGS (1)
  1. MYRBETRIQ [Suspect]
     Active Substance: MIRABEGRON
     Indication: POLLAKIURIA
     Dosage: 25 MG, TWICE DAILY (ONE TABLET IN MORNING AND ONE TABLET IN EVENING)
     Route: 065
     Dates: start: 20170316

REACTIONS (4)
  - Wrong technique in product usage process [Unknown]
  - Pollakiuria [Unknown]
  - Nocturia [Unknown]
  - Intentional product misuse [Unknown]
